FAERS Safety Report 4901761-5 (Version None)
Quarter: 2006Q1

REPORT INFORMATION
  Report Type: 
  Country: None (occurrence: None)
  Receive Date: 20060206
  Receipt Date: 20051229
  Transmission Date: 20060701
  Serious: Yes (Hospitalization)
  Sender: FDA-Public Use
  Company Number: US-AMGEN-KDL163227

PATIENT
  Sex: Male

DRUGS (3)
  1. ENBREL [Suspect]
     Indication: RHEUMATOID ARTHRITIS
     Route: 058
     Dates: start: 20000401
  2. PREDNISONE [Concomitant]
  3. NSAIDS [Concomitant]

REACTIONS (5)
  - ARTHRALGIA [None]
  - CONDITION AGGRAVATED [None]
  - DIVERTICULUM [None]
  - JOINT SWELLING [None]
  - LOCAL SWELLING [None]
